FAERS Safety Report 5318061-4 (Version None)
Quarter: 2007Q2

REPORT INFORMATION
  Report Type: 
  Country: None (occurrence: None)
  Receive Date: 20070504
  Receipt Date: 20070504
  Transmission Date: 20071010
  Serious: Yes (Other)
  Sender: FDA-Public Use
  Company Number: None

PATIENT
  Age: 61 Year
  Sex: Female

DRUGS (1)
  1. BELLAMINE-S AMIDE [Suspect]
     Indication: MENOPAUSAL SYMPTOMS
     Dosage: 2 TABS AT BEDTIME
     Dates: start: 20050801

REACTIONS (3)
  - INSOMNIA [None]
  - NIGHT SWEATS [None]
  - PHARMACEUTICAL PRODUCT COMPLAINT [None]
